FAERS Safety Report 10157741 (Version 3)
Quarter: 2014Q3

REPORT INFORMATION
  Report Type: Spontaneous
  Country: GB (occurrence: GB)
  Receive Date: 20140507
  Receipt Date: 20140702
  Transmission Date: 20150326
  Serious: Yes (Other)
  Sender: FDA-Public Use
  Company Number: PHFR2014GB003165

PATIENT
  Sex: Male

DRUGS (7)
  1. TEGRETOL [Suspect]
     Active Substance: CARBAMAZEPINE
     Indication: TRIGEMINAL NEURALGIA
     Dosage: 1200 MG, TABLET CONC 200 MG (400 (NOS) MG IN THE MORING, 400 (NOS) MILD AFTERNOON, 400(NOS) AT NIGHT
     Route: 048
     Dates: start: 1990
  2. TEGRETOL [Suspect]
     Active Substance: CARBAMAZEPINE
     Dosage: 100 MG, UNK
  3. TEGRETOL [Suspect]
     Active Substance: CARBAMAZEPINE
     Dosage: 400 MG, UNK
  4. TEGRETOL [Suspect]
     Active Substance: CARBAMAZEPINE
     Dosage: 200 MG, UNK
  5. TEGRETOL [Suspect]
     Active Substance: CARBAMAZEPINE
     Dosage: 800 MG, DAILY
     Dates: start: 1990
  6. TEGRETOL [Suspect]
     Active Substance: CARBAMAZEPINE
     Dosage: 1200 MG, TABLET CONC 200 MG (400 (NOS) MG IN THE MORING, 400 (NOS) MILD AFTERNOON, 400(NOS) AT NIGHT
     Route: 048
     Dates: start: 1990
  7. TEGRETOL [Suspect]
     Active Substance: CARBAMAZEPINE
     Dosage: 200 UNK, UNK

REACTIONS (6)
  - General physical condition abnormal [Recovering/Resolving]
  - Wrong technique in drug usage process [Unknown]
  - Aphagia [Recovering/Resolving]
  - Vitamin B12 deficiency [Recovering/Resolving]
  - Speech disorder [Recovering/Resolving]
  - Drug ineffective [Recovering/Resolving]
